FAERS Safety Report 7227315-6 (Version None)
Quarter: 2011Q1

REPORT INFORMATION
  Report Type: 
  Country: None (occurrence: None)
  Receive Date: 20110114
  Receipt Date: 20110104
  Transmission Date: 20110831
  Serious: Yes (Other)
  Sender: FDA-Public Use
  Company Number: B0693350A

PATIENT
  Age: 13 Year
  Sex: Male

DRUGS (3)
  1. COTRIM [Concomitant]
  2. LOPINAVIR [Suspect]
     Route: 065
  3. ABACAVIR SULFATE/LAMIVUDINE [Suspect]
     Indication: PNEUMONIA
     Route: 065

REACTIONS (6)
  - DYSPNOEA [None]
  - TUBERCULOSIS [None]
  - CD4 LYMPHOCYTES DECREASED [None]
  - COUGH [None]
  - IMMUNE RECONSTITUTION SYNDROME [None]
  - PYREXIA [None]
